FAERS Safety Report 8523159-3 (Version None)
Quarter: 2012Q3

REPORT INFORMATION
  Report Type: 
  Country: None (occurrence: None)
  Receive Date: 20120713
  Receipt Date: 20120713
  Transmission Date: 20120928
  Serious: Yes (Other)
  Sender: FDA-Public Use
  Company Number: None

PATIENT
  Age: 45 Year
  Sex: Female
  Weight: 62.1428 kg

DRUGS (2)
  1. ESCITALOPRAM [Suspect]
     Indication: PANIC REACTION
     Dosage: 5 MG, DAILY
     Dates: start: 20120405, end: 20120710
  2. ESCITALOPRAM [Suspect]
     Indication: ANXIETY
     Dosage: 5 MG, DAILY
     Dates: start: 20120405, end: 20120710

REACTIONS (14)
  - NAUSEA [None]
  - FATIGUE [None]
  - FEELING ABNORMAL [None]
  - DISTURBANCE IN ATTENTION [None]
  - TREATMENT NONCOMPLIANCE [None]
  - DIZZINESS [None]
  - DRUG EFFECT DECREASED [None]
  - FEELING HOT [None]
  - PRODUCT SUBSTITUTION ISSUE [None]
  - HEART RATE INCREASED [None]
  - ANHEDONIA [None]
  - TREMOR [None]
  - PANIC ATTACK [None]
  - DECREASED INTEREST [None]
